FAERS Safety Report 24332702 (Version 1)
Quarter: 2024Q3

REPORT INFORMATION
  Report Type: Spontaneous
  Country: US (occurrence: None)
  Receive Date: 20240917
  Receipt Date: 20240917
  Transmission Date: 20241017
  Serious: Yes (Other)
  Sender: Public
  Company Number: None

PATIENT
  Age: 28 Year
  Sex: Male
  Weight: 66.6 kg

DRUGS (1)
  1. CABTREO [Suspect]
     Active Substance: ADAPALENE\BENZOYL PEROXIDE\CLINDAMYCIN PHOSPHATE
     Indication: Acne
     Dosage: OTHER QUANTITY : 50 GRAMS;?FREQUENCY : AT BEDTIME;?
     Route: 061
     Dates: start: 20240501, end: 20240917

REACTIONS (1)
  - Haematochezia [None]

NARRATIVE: CASE EVENT DATE: 20240512
